FAERS Safety Report 16344919 (Version 1)
Quarter: 2019Q2

REPORT INFORMATION
  Report Type: Spontaneous
  Country: US (occurrence: US)
  Receive Date: 20190522
  Receipt Date: 20190522
  Transmission Date: 20190711
  Serious: No
  Sender: FDA-Public Use
  Company Number: US-SHIRE-US201916691

PATIENT
  Sex: Female
  Weight: 52.15 kg

DRUGS (2)
  1. XIIDRA [Suspect]
     Active Substance: LIFITEGRAST
     Indication: DRY EYE
     Dosage: UNK UNK, 1X/DAY:QD
     Route: 047
     Dates: start: 201901, end: 2019
  2. XIIDRA [Suspect]
     Active Substance: LIFITEGRAST
     Indication: EYE PRURITUS

REACTIONS (8)
  - Condition aggravated [Recovering/Resolving]
  - Off label use [Recovered/Resolved]
  - Instillation site hypersensitivity [Recovering/Resolving]
  - Instillation site swelling [Recovering/Resolving]
  - Eyelid exfoliation [Recovering/Resolving]
  - Instillation site pruritus [Recovering/Resolving]
  - Instillation site erythema [Recovering/Resolving]
  - Photosensitivity reaction [Recovering/Resolving]

NARRATIVE: CASE EVENT DATE: 2019
